FAERS Safety Report 19262238 (Version 1)
Quarter: 2021Q2

REPORT INFORMATION
  Report Type: Spontaneous
  Country: US (occurrence: US)
  Receive Date: 20210516
  Receipt Date: 20210516
  Transmission Date: 20210717
  Serious: Yes (Hospitalization, Other)
  Sender: FDA-Public Use
  Company Number: US-SA-2021SA160657

PATIENT
  Age: 84 Year
  Sex: Female

DRUGS (2)
  1. CYCLOPHOSPHAMIDE. [Suspect]
     Active Substance: CYCLOPHOSPHAMIDE
     Indication: BREAST CANCER
     Dosage: UNK
  2. DOCETAXEL. [Suspect]
     Active Substance: DOCETAXEL
     Indication: BREAST CANCER
     Dosage: UNK

REACTIONS (10)
  - Angina unstable [Unknown]
  - Acute myocardial infarction [Unknown]
  - Ventricular hypokinesia [Unknown]
  - Ventricular extrasystoles [Unknown]
  - Blood pressure increased [Unknown]
  - Left ventricle outflow tract obstruction [Unknown]
  - Stress cardiomyopathy [Unknown]
  - Pulse pressure decreased [Unknown]
  - Dyspnoea [Unknown]
  - Hyperdynamic left ventricle [Unknown]
